FAERS Safety Report 12092568 (Version 1)
Quarter: 2016Q1

REPORT INFORMATION
  Report Type: Other
  Country: ZA (occurrence: ZA)
  Receive Date: 20160219
  Receipt Date: 20160219
  Transmission Date: 20160526
  Serious: Yes (Other)
  Sender: FDA-Public Use
  Company Number: ZA-LUPIN PHARMACEUTICALS INC.-2016-00664

PATIENT
  Age: 4 Year
  Sex: Female

DRUGS (28)
  1. PYRAZINAMIDE. [Suspect]
     Active Substance: PYRAZINAMIDE
     Indication: MENINGITIS TUBERCULOUS
     Route: 065
     Dates: start: 201111, end: 201112
  2. ETHIONAMIDE [Suspect]
     Active Substance: ETHIONAMIDE
     Route: 065
     Dates: start: 201202, end: 201206
  3. ETHIONAMIDE [Suspect]
     Active Substance: ETHIONAMIDE
     Route: 065
     Dates: start: 201301
  4. CAPREOMYCIN [Concomitant]
     Active Substance: CAPREOMYCIN
     Indication: MENINGITIS TUBERCULOUS
     Route: 065
  5. AMIKACIN [Suspect]
     Active Substance: AMIKACIN
     Indication: MENINGITIS TUBERCULOUS
     Route: 065
     Dates: start: 201201, end: 201201
  6. ETHIONAMIDE [Suspect]
     Active Substance: ETHIONAMIDE
     Route: 065
     Dates: start: 201208, end: 201211
  7. CLOFAZIMINE [Concomitant]
     Active Substance: CLOFAZIMINE
     Indication: MENINGITIS TUBERCULOUS
     Route: 065
  8. AMIKACIN [Suspect]
     Active Substance: AMIKACIN
     Route: 065
     Dates: start: 201208, end: 201209
  9. TERIZIDONE [Concomitant]
     Active Substance: TERIZIDONE
     Route: 065
     Dates: start: 201208
  10. CLARITHROMYCIN. [Concomitant]
     Active Substance: CLARITHROMYCIN
     Indication: MENINGITIS TUBERCULOUS
     Route: 065
  11. OFLOXACIN. [Suspect]
     Active Substance: OFLOXACIN
     Route: 065
     Dates: start: 201208, end: 201210
  12. RIFAMPIN. [Suspect]
     Active Substance: RIFAMPIN
     Route: 065
     Dates: start: 201202, end: 201206
  13. ETHAMBUTOL [Suspect]
     Active Substance: ETHAMBUTOL HYDROCHLORIDE
     Indication: MENINGITIS TUBERCULOUS
     Route: 065
     Dates: start: 201201, end: 201201
  14. ISONIAZID. [Suspect]
     Active Substance: ISONIAZID
     Route: 065
     Dates: start: 201202, end: 201206
  15. PARA AMINOSALICYLIC ACID [Suspect]
     Active Substance: AMINOSALICYLIC ACID
     Route: 065
     Dates: start: 201301
  16. PREDNISOLONE. [Concomitant]
     Active Substance: PREDNISOLONE
     Dosage: DOSE TAPERED
     Route: 065
  17. OFLOXACIN. [Suspect]
     Active Substance: OFLOXACIN
     Indication: MENINGITIS TUBERCULOUS
     Route: 065
     Dates: start: 201201, end: 201201
  18. PYRAZINAMIDE. [Suspect]
     Active Substance: PYRAZINAMIDE
     Route: 065
     Dates: start: 201208, end: 201211
  19. PREDNISOLONE. [Concomitant]
     Active Substance: PREDNISOLONE
     Indication: MENINGITIS TUBERCULOUS
     Route: 065
  20. TERIZIDONE [Concomitant]
     Active Substance: TERIZIDONE
     Indication: MENINGITIS TUBERCULOUS
     Route: 065
     Dates: start: 201201, end: 201206
  21. ETHIONAMIDE [Suspect]
     Active Substance: ETHIONAMIDE
     Indication: MENINGITIS TUBERCULOUS
     Route: 065
     Dates: start: 201111, end: 201112
  22. LEVOFLOXACIN. [Concomitant]
     Active Substance: LEVOFLOXACIN
     Indication: MENINGITIS TUBERCULOUS
     Route: 065
     Dates: start: 201311
  23. LINEZOLID. [Concomitant]
     Active Substance: LINEZOLID
     Indication: MENINGITIS TUBERCULOUS
     Route: 065
     Dates: start: 201210
  24. RIFAMPIN. [Suspect]
     Active Substance: RIFAMPIN
     Indication: MENINGITIS TUBERCULOUS
     Route: 065
     Dates: start: 201111, end: 201112
  25. ETHAMBUTOL [Suspect]
     Active Substance: ETHAMBUTOL HYDROCHLORIDE
     Route: 065
     Dates: start: 201208, end: 201211
  26. ISONIAZID. [Suspect]
     Active Substance: ISONIAZID
     Indication: MENINGITIS TUBERCULOUS
     Route: 065
     Dates: start: 201111, end: 201112
  27. STREPTOMYCIN [Suspect]
     Active Substance: STREPTOMYCIN\STREPTOMYCIN SULFATE
     Indication: MENINGITIS TUBERCULOUS
     Route: 065
  28. PARAAMINOSALICYLIC ACID [Suspect]
     Active Substance: AMINOSALICYLIC ACID
     Indication: MENINGITIS TUBERCULOUS
     Route: 065
     Dates: start: 201209, end: 201211

REACTIONS (6)
  - Hepatitis [Recovered/Resolved]
  - Drug resistance [Unknown]
  - Disease progression [None]
  - Hydrocephalus [None]
  - Hemiparesis [None]
  - Ascites [None]
